FAERS Safety Report 14044068 (Version 1)
Quarter: 2017Q4

REPORT INFORMATION
  Report Type: Spontaneous
  Country: US (occurrence: US)
  Receive Date: 20171004
  Receipt Date: 20171004
  Transmission Date: 20180321
  Serious: Yes (Disabling)
  Sender: FDA-Public Use
  Company Number: None

PATIENT
  Age: 68 Year
  Sex: Female
  Weight: 65.25 kg

DRUGS (1)
  1. PROLIA [Suspect]
     Active Substance: DENOSUMAB
     Indication: OSTEOARTHRITIS
     Dosage: ?          QUANTITY:1 INJECTION(S);OTHER FREQUENCY:ONCE A YEAR;?
     Route: 058

REACTIONS (7)
  - Pain [None]
  - Urinary incontinence [None]
  - Atrioventricular block [None]
  - Gait inability [None]
  - Headache [None]
  - Photophobia [None]
  - Tooth fracture [None]

NARRATIVE: CASE EVENT DATE: 20160130
